FAERS Safety Report 5841967-4 (Version None)
Quarter: 2008Q3

REPORT INFORMATION
  Report Type: 
  Country: None (occurrence: None)
  Receive Date: 20080811
  Receipt Date: 20080811
  Transmission Date: 20090109
  Serious: Yes (Hospitalization)
  Sender: FDA-Public Use
  Company Number: None

PATIENT
  Age: 40 Year
  Sex: Female
  Weight: 53.5244 kg

DRUGS (2)
  1. YOUR LIFE LIQUIMAX LEINER HEALTH PRODUCTS [Suspect]
     Indication: MULTI-VITAMIN DEFICIENCY
     Dosage: 2 TABLESPOONS PER DAY PO
     Route: 048
     Dates: start: 20080611, end: 20080611
  2. YOUR LIFE LIQUIMAX LEINER HEALTH PRODUCTS [Suspect]
     Indication: MULTI-VITAMIN DEFICIENCY
     Dosage: 2 TABLESPOONS PER DAY PO
     Route: 048
     Dates: start: 20080618, end: 20080618

REACTIONS (13)
  - CEREBROVASCULAR ACCIDENT [None]
  - COLD SWEAT [None]
  - DIARRHOEA [None]
  - FALL [None]
  - FEELING ABNORMAL [None]
  - MALAISE [None]
  - MOVEMENT DISORDER [None]
  - MYOCARDIAL INFARCTION [None]
  - PARAESTHESIA [None]
  - PHARMACEUTICAL PRODUCT COMPLAINT [None]
  - STOMACH DISCOMFORT [None]
  - VERTIGO [None]
  - VISUAL IMPAIRMENT [None]
